FAERS Safety Report 12355120 (Version 7)
Quarter: 2018Q2

REPORT INFORMATION
  Report Type: Spontaneous
  Country: US (occurrence: US)
  Receive Date: 20160511
  Receipt Date: 20180430
  Transmission Date: 20180711
  Serious: Yes (Other)
  Sender: FDA-Public Use
  Company Number: US-PFIZER INC-2016079225

PATIENT
  Age: 55 Year
  Sex: Female

DRUGS (30)
  1. PROVENTIL HFA [Concomitant]
     Active Substance: ALBUTEROL SULFATE
     Indication: BRONCHITIS
     Dosage: 90MCG/ACTUATION INHALER, INHALE 2 PUFFS INTO THE LUNGS EVERY 4 HOURS AS NEEDED
     Route: 045
  2. CATAPRES [Concomitant]
     Active Substance: CLONIDINE HYDROCHLORIDE
     Indication: ESSENTIAL HYPERTENSION
     Dosage: 0.2 MG, 2X/DAY
     Route: 048
  3. ATIVAN [Concomitant]
     Active Substance: LORAZEPAM
     Indication: PANIC ATTACK
     Dosage: ABLET 1 MG TAKE 1-2 TABLETS EVERY EIGHT HOURS AS NEEDED
     Route: 048
  4. ROXICODONE [Concomitant]
     Active Substance: OXYCODONE HYDROCHLORIDE
     Indication: PAIN
  5. PROCARDIA [Concomitant]
     Active Substance: NIFEDIPINE
     Indication: ESSENTIAL HYPERTENSION
     Dosage: 60 MG, DAILY
     Route: 048
  6. LYRICA [Suspect]
     Active Substance: PREGABALIN
     Indication: FIBROMYALGIA
  7. ZOFRAN [Concomitant]
     Active Substance: ONDANSETRON HYDROCHLORIDE
     Dosage: 4 MG, UNK
     Route: 042
     Dates: start: 20160119
  8. NITROSTAT [Concomitant]
     Active Substance: NITROGLYCERIN
     Dosage: 0.4 MG, UNK
     Route: 060
     Dates: start: 20160119
  9. VENTOLIN HFA [Concomitant]
     Active Substance: ALBUTEROL SULFATE
     Indication: BRONCHITIS
     Dosage: 90MCG/ACTUATION INHALER, INHALE 2 PUFFS INTO THE LUNGS EVERY 4 HOURS AS NEEDED
     Route: 045
  10. FOLVITE [Concomitant]
     Active Substance: FOLIC ACID
     Indication: ARTHRITIS
     Dosage: 1 MG, 1X/DAY
     Route: 048
  11. METHOTREXATE. [Concomitant]
     Active Substance: METHOTREXATE
     Indication: ARTHRITIS
     Dosage: 0.6 ML, WEEKLY ((PF) 25 MG/ML SOLN)
     Route: 058
  12. GLUCAGON. [Concomitant]
     Active Substance: GLUCAGON
     Dosage: 2 MG, UNK
     Route: 042
     Dates: start: 20160119
  13. SODIUM CHLORIDE. [Concomitant]
     Active Substance: SODIUM CHLORIDE
     Dosage: 1000 ML, UNK
     Route: 042
     Dates: start: 20160119
  14. PROVENTIL HFA [Concomitant]
     Active Substance: ALBUTEROL SULFATE
     Indication: WHEEZING
  15. LASIX [Concomitant]
     Active Substance: FUROSEMIDE
     Indication: ESSENTIAL HYPERTENSION
     Dosage: 20 MG, 1X/DAY
     Route: 048
  16. CYMBALTA [Concomitant]
     Active Substance: DULOXETINE HYDROCHLORIDE
     Indication: FIBROMYALGIA
     Dosage: 60 MG, DAILY
     Route: 048
  17. COZAAR [Concomitant]
     Active Substance: LOSARTAN POTASSIUM
     Indication: ESSENTIAL HYPERTENSION
     Dosage: 100 MG, 1X/DAY
     Route: 048
  18. LYRICA [Suspect]
     Active Substance: PREGABALIN
     Indication: INTERVERTEBRAL DISC DEGENERATION
     Dosage: 150 MG, 3X/DAY
     Route: 048
     Dates: start: 20120724
  19. LYRICA [Suspect]
     Active Substance: PREGABALIN
     Indication: MAJOR DEPRESSION
  20. HUMIRA [Concomitant]
     Active Substance: ADALIMUMAB
     Indication: RHEUMATOID ARTHRITIS
     Dosage: 40 MG/0.8 ML INJECTION, INJECT ONE DOSE EVERY 2 WEEKS
     Route: 058
  21. CYMBALTA [Concomitant]
     Active Substance: DULOXETINE HYDROCHLORIDE
     Indication: DEPRESSION
     Dosage: 30 MG, 1X/DAY
     Route: 048
  22. GLUCAGON. [Concomitant]
     Active Substance: GLUCAGON
     Dosage: 2 MG, UNK
     Route: 042
     Dates: start: 20160119
  23. BUSPAR [Concomitant]
     Active Substance: BUSPIRONE HYDROCHLORIDE
     Indication: GENERALISED ANXIETY DISORDER
     Dosage: 15 MG, 3X/DAY
     Route: 048
  24. VALIUM [Concomitant]
     Active Substance: DIAZEPAM
     Dosage: 10 MG, UNK
  25. VENTOLIN HFA [Concomitant]
     Active Substance: ALBUTEROL SULFATE
     Indication: WHEEZING
  26. SOMA [Concomitant]
     Active Substance: CARISOPRODOL
     Indication: MUSCLE SPASMS
     Dosage: 350 MG, 1 TABLET 2X/DAY AS NEEDED
     Route: 048
  27. ROXICODONE [Concomitant]
     Active Substance: OXYCODONE HYDROCHLORIDE
     Indication: SPINAL OSTEOARTHRITIS
     Dosage: 5 MG, EVERY 6 HOURS AS NEEDED
     Route: 048
  28. SOMA [Concomitant]
     Active Substance: CARISOPRODOL
     Indication: SPINAL OSTEOARTHRITIS
  29. ATIVAN [Concomitant]
     Active Substance: LORAZEPAM
     Indication: ANXIETY
  30. PRILOSEC [Concomitant]
     Active Substance: OMEPRAZOLE MAGNESIUM
     Indication: GASTROOESOPHAGEAL REFLUX DISEASE
     Dosage: 20 MG, 2X/DAY
     Route: 048

REACTIONS (5)
  - Pain [Unknown]
  - Arthritis [Recovered/Resolved]
  - Withdrawal syndrome [Recovered/Resolved]
  - Restless legs syndrome [Unknown]
  - Malaise [Recovered/Resolved]
